FAERS Safety Report 26004696 (Version 2)
Quarter: 2025Q4

REPORT INFORMATION
  Report Type: Spontaneous
  Country: US (occurrence: US)
  Receive Date: 20251106
  Receipt Date: 20251210
  Transmission Date: 20260118
  Serious: Yes (Other)
  Sender: SUNOVION
  Company Number: US-SMPA-2025SPA014306

PATIENT
  Age: 61 Year
  Sex: Male

DRUGS (3)
  1. ORGOVYX [Suspect]
     Active Substance: RELUGOLIX
     Indication: Prostate cancer
     Dosage: 360 MG, SINGLE
     Route: 048
  2. ORGOVYX [Suspect]
     Active Substance: RELUGOLIX
     Dosage: 120 MG, QD
     Route: 048
     Dates: start: 20230802
  3. XTANDI [Concomitant]
     Active Substance: ENZALUTAMIDE
     Dosage: UNK

REACTIONS (2)
  - Prostate cancer metastatic [Unknown]
  - Blood glucose increased [Recovering/Resolving]
